FAERS Safety Report 7462016-0 (Version None)
Quarter: 2011Q2

REPORT INFORMATION
  Report Type: 
  Country: None (occurrence: None)
  Receive Date: 20110506
  Receipt Date: 20100622
  Transmission Date: 20111010
  Serious: No
  Sender: FDA-Public Use
  Company Number: US-BAYER-201027753NA

PATIENT
  Age: 15 Year
  Sex: Female

DRUGS (3)
  1. SOTRET [Concomitant]
  2. AMNESTEEM [Concomitant]
  3. YAZ [Suspect]

REACTIONS (2)
  - ANXIETY [None]
  - PANIC ATTACK [None]
